FAERS Safety Report 11243331 (Version 1)
Quarter: 2015Q3

REPORT INFORMATION
  Report Type: Spontaneous
  Country: BR (occurrence: BR)
  Receive Date: 20150707
  Receipt Date: 20150707
  Transmission Date: 20151125
  Serious: Yes (Hospitalization, Other)
  Sender: FDA-Public Use
  Company Number: BR-PFIZER INC-2015225128

PATIENT
  Age: 32 Year
  Sex: Male

DRUGS (1)
  1. CELEBRA [Suspect]
     Active Substance: CELECOXIB
     Dosage: STRENGTH 200 MG
     Route: 048

REACTIONS (2)
  - Pyrexia [Unknown]
  - Toxicity to various agents [Unknown]
